FAERS Safety Report 25057540 (Version 2)
Quarter: 2025Q1

REPORT INFORMATION
  Report Type: Spontaneous
  Country: TR (occurrence: TR)
  Receive Date: 20250310
  Receipt Date: 20250318
  Transmission Date: 20250409
  Serious: No
  Sender: SANDOZ
  Company Number: TR-SANDOZ-SDZ2025TR012823

PATIENT
  Age: 24 Year
  Sex: Male

DRUGS (1)
  1. OMNITROPE [Suspect]
     Active Substance: SOMATROPIN
     Indication: Growth retardation
     Route: 058

REACTIONS (3)
  - Therapy interrupted [Unknown]
  - Drug dose omission by device [Unknown]
  - Product availability issue [Unknown]
